FAERS Safety Report 10416184 (Version 1)
Quarter: 2014Q3

REPORT INFORMATION
  Report Type: Spontaneous
  Country: DK (occurrence: FR)
  Receive Date: 20140828
  Receipt Date: 20140828
  Transmission Date: 20150326
  Serious: Yes (Life-Threatening, Hospitalization)
  Sender: FDA-Public Use
  Company Number: FR-FRI-1000070202

PATIENT
  Age: 69 Year
  Sex: Female

DRUGS (9)
  1. ESCITALOPRAM [Suspect]
     Active Substance: ESCITALOPRAM OXALATE
     Indication: DEPRESSION
     Dosage: 5 MG
     Route: 048
     Dates: start: 20140728, end: 20140729
  2. EFFEXOR LP [Suspect]
     Active Substance: VENLAFAXINE HYDROCHLORIDE
     Indication: DEPRESSION
     Dosage: 37.5 MG
     Route: 048
     Dates: start: 20140730, end: 20140801
  3. TRAMADOL [Suspect]
     Active Substance: TRAMADOL
     Indication: PROCEDURAL PAIN
     Dosage: 200 MG
     Route: 048
     Dates: start: 20140721, end: 20140801
  4. ANASTROZOLE. [Concomitant]
     Active Substance: ANASTROZOLE
  5. DAFALGAN [Concomitant]
     Active Substance: ACETAMINOPHEN
  6. FUMAFER [Concomitant]
     Active Substance: FERROUS FUMARATE
  7. NOROXINE [Concomitant]
     Active Substance: NORFLOXACIN
  8. SPECIAFOLDINE [Concomitant]
     Active Substance: FOLIC ACID
  9. LEXOMIL ROCHE [Concomitant]
     Active Substance: BROMAZEPAM
     Route: 048

REACTIONS (8)
  - Serotonin syndrome [Recovering/Resolving]
  - Confusional state [Recovering/Resolving]
  - Delusion [Recovering/Resolving]
  - Hyperhidrosis [Recovering/Resolving]
  - Hypertension [Recovering/Resolving]
  - Myoclonus [Recovering/Resolving]
  - Extrapyramidal disorder [Recovering/Resolving]
  - Drug interaction [Recovering/Resolving]

NARRATIVE: CASE EVENT DATE: 20140801
